FAERS Safety Report 6625740-5 (Version None)
Quarter: 2010Q1

REPORT INFORMATION
  Report Type: 
  Country: None (occurrence: None)
  Receive Date: 20100310
  Receipt Date: 20100304
  Transmission Date: 20100710
  Serious: Yes (Hospitalization)
  Sender: FDA-Public Use
  Company Number: US-SANOFI-AVENTIS-2010SA011462

PATIENT
  Age: 66 Year
  Sex: Female

DRUGS (3)
  1. MULTAQ [Suspect]
     Route: 048
     Dates: start: 20100214
  2. AMIODARONE HCL [Suspect]
     Route: 048
     Dates: end: 20100214
  3. AMIODARONE HCL [Suspect]
     Route: 048
     Dates: start: 20100201

REACTIONS (1)
  - PANCREATITIS [None]
